FAERS Safety Report 25985653 (Version 1)
Quarter: 2025Q4

REPORT INFORMATION
  Report Type: Report from Study
  Country: GB (occurrence: GB)
  Receive Date: 20251031
  Receipt Date: 20251031
  Transmission Date: 20260118
  Serious: Yes (Hospitalization, Other)
  Sender: JOHNSON AND JOHNSON
  Company Number: GB-JNJFOC-20251038012

PATIENT
  Age: 59 Year
  Sex: Female

DRUGS (1)
  1. CILTACABTAGENE AUTOLEUCEL [Suspect]
     Active Substance: CILTACABTAGENE AUTOLEUCEL
     Indication: Plasma cell myeloma
     Route: 065
     Dates: start: 20221228, end: 20221228

REACTIONS (6)
  - Fatigue [Recovered/Resolved]
  - Pyrexia [Recovered/Resolved]
  - Alopecia [Recovered/Resolved]
  - Migraine [Recovered/Resolved]
  - Blindness [Recovered/Resolved]
  - Amblyopia [Recovered/Resolved]

NARRATIVE: CASE EVENT DATE: 20221228
